FAERS Safety Report 6294416-9 (Version None)
Quarter: 2009Q3

REPORT INFORMATION
  Report Type: 
  Country: None (occurrence: None)
  Receive Date: 20090803
  Receipt Date: 20090720
  Transmission Date: 20100115
  Serious: Yes (Other)
  Sender: FDA-Public Use
  Company Number: US-ROCHE-645196

PATIENT
  Sex: Female

DRUGS (2)
  1. COPEGUS [Suspect]
     Route: 065
     Dates: end: 20090301
  2. PEGASYS [Suspect]
     Dosage: FORM: VIAL, DOSE 1 VIAL WEEKLY
     Route: 065
     Dates: end: 20090301

REACTIONS (2)
  - DYSMENORRHOEA [None]
  - OVARIAN CYST [None]
